FAERS Safety Report 5751823-8 (Version None)
Quarter: 2008Q2

REPORT INFORMATION
  Report Type: 
  Country: None (occurrence: None)
  Receive Date: 20080529
  Receipt Date: 20080124
  Transmission Date: 20081010
  Serious: Yes (Death, Other)
  Sender: FDA-Public Use
  Company Number: US-BAYER-200811969NA

PATIENT
  Sex: Female

DRUGS (5)
  1. MAGNEVIST [Suspect]
     Indication: NUCLEAR MAGNETIC RESONANCE IMAGING
  2. OMNISCAN [Suspect]
  3. OPTIMARK [Suspect]
  4. MULTIHANCE [Suspect]
  5. PROHANCE [Suspect]

REACTIONS (3)
  - FIBROSIS [None]
  - LUNG DISORDER [None]
  - NEPHROGENIC SYSTEMIC FIBROSIS [None]
